FAERS Safety Report 7132902-X (Version None)
Quarter: 2010Q4

REPORT INFORMATION
  Report Type: 
  Country: None (occurrence: None)
  Receive Date: 20101202
  Receipt Date: 20101129
  Transmission Date: 20110411
  Serious: Yes (Disabling, Other)
  Sender: FDA-Public Use
  Company Number: US-PFIZER INC-2010117323

PATIENT
  Sex: Female

DRUGS (2)
  1. CHANTIX [Suspect]
     Indication: SMOKING CESSATION THERAPY
     Dosage: STARTING PACK AND CONTINUING PACK
     Dates: start: 20081006, end: 20081201
  2. CHANTIX [Suspect]
     Dosage: STARTING PACK AND CONTINUING PACK
     Dates: start: 20090501, end: 20090515

REACTIONS (7)
  - ANXIETY [None]
  - DEPRESSION [None]
  - FALL [None]
  - INJURY [None]
  - LOSS OF CONSCIOUSNESS [None]
  - MEMORY IMPAIRMENT [None]
  - PANIC ATTACK [None]
